FAERS Safety Report 25567460 (Version 1)
Quarter: 2025Q3

REPORT INFORMATION
  Report Type: Report from Study
  Country: US (occurrence: US)
  Receive Date: 20250716
  Receipt Date: 20250716
  Transmission Date: 20251020
  Serious: Yes (Hospitalization)
  Sender: PFIZER
  Company Number: US-PFIZER INC-202500141431

PATIENT
  Age: 77 Year
  Sex: Male

DRUGS (4)
  1. TALZENNA [Suspect]
     Active Substance: TALAZOPARIB TOSYLATE
     Indication: Prostate cancer
     Dosage: TAKE 1-0.35MG CAPSULE BY MOUTH ONCE DAILY
     Route: 048
  2. XTANDI [Concomitant]
     Active Substance: ENZALUTAMIDE
  3. MEGESTROL ACETATE [Concomitant]
     Active Substance: MEGESTROL ACETATE
     Route: 048
  4. OXYBUTYNIN CHLORIDE [Concomitant]
     Active Substance: OXYBUTYNIN CHLORIDE

REACTIONS (1)
  - Full blood count decreased [Unknown]
